FAERS Safety Report 7092076-0 (Version None)
Quarter: 2010Q4

REPORT INFORMATION
  Report Type: 
  Country: None (occurrence: None)
  Receive Date: 20101109
  Receipt Date: 20101029
  Transmission Date: 20110411
  Serious: Yes (Hospitalization, Other)
  Sender: FDA-Public Use
  Company Number: BR-US-EMD SERONO, INC.-7014382

PATIENT
  Sex: Female

DRUGS (7)
  1. REBIF [Suspect]
     Indication: RELAPSING-REMITTING MULTIPLE SCLEROSIS
     Route: 058
     Dates: start: 20100526
  2. RIVOTRIL (CLONAREPAM) [Concomitant]
     Dosage: 10 DROPS
  3. DIAZEPAM [Concomitant]
  4. RANITIDINE [Concomitant]
  5. OMEPRAZOLE [Concomitant]
  6. VOLTAREN [Concomitant]
  7. AMOXYCILLIN 500 MG CAPSULES [Concomitant]

REACTIONS (11)
  - ANAEMIA [None]
  - ARTHRALGIA [None]
  - ASTHENIA [None]
  - DECREASED APPETITE [None]
  - DIARRHOEA [None]
  - DYSARTHRIA [None]
  - LEUKOPENIA [None]
  - OEDEMA PERIPHERAL [None]
  - STOMATITIS [None]
  - THROMBOSIS [None]
  - WHEELCHAIR USER [None]
